FAERS Safety Report 25995812 (Version 1)
Quarter: 2025Q4

REPORT INFORMATION
  Report Type: Spontaneous
  Country: US (occurrence: US)
  Receive Date: 20251104
  Receipt Date: 20251104
  Transmission Date: 20260117
  Serious: No
  Sender: NOVARTIS
  Company Number: US-002147023-NVSC2025US167575

PATIENT
  Sex: Male

DRUGS (2)
  1. PAZOPANIB [Suspect]
     Active Substance: PAZOPANIB
     Indication: Plasma cell myeloma refractory
     Dosage: UNK
     Route: 065
  2. FOTIVDA [Suspect]
     Active Substance: TIVOZANIB HYDROCHLORIDE
     Indication: Plasma cell myeloma refractory
     Dosage: UNK
     Route: 065
     Dates: start: 20240918, end: 2025

REACTIONS (10)
  - Back pain [Unknown]
  - Ear discomfort [Unknown]
  - Sinus congestion [Unknown]
  - Adverse drug reaction [Unknown]
  - Skin exfoliation [Unknown]
  - Hypersensitivity [Unknown]
  - Influenza [Unknown]
  - Therapy non-responder [Unknown]
  - Fatigue [Unknown]
  - Myalgia [Unknown]
